FAERS Safety Report 18731674 (Version 1)
Quarter: 2021Q1

REPORT INFORMATION
  Report Type: Report from Study
  Country: US (occurrence: US)
  Receive Date: 20210112
  Receipt Date: 20210112
  Transmission Date: 20210419
  Serious: Yes (Hospitalization, Other)
  Sender: FDA-Public Use
  Company Number: US-JNJFOC-20200936438

PATIENT
  Age: 55 Year
  Sex: Male
  Weight: 79.9 kg

DRUGS (26)
  1. FLONASE [Concomitant]
     Active Substance: FLUTICASONE PROPIONATE
     Dosage: 1?2 SPRAY IN EACH NOSTRIL DAILY
     Route: 045
  2. ALBUTEROL [SALBUTAMOL] [Concomitant]
     Active Substance: ALBUTEROL
     Dosage: 2 PUFFS TID
  3. CLARITIN [Concomitant]
     Active Substance: LORATADINE
     Route: 048
  4. MULTIVITAMINS [VITAMINS NOS] [Concomitant]
     Active Substance: VITAMINS
     Dosage: 1 TABLET DAILY WITH DINNER
     Route: 048
  5. PROAIR HFA [Concomitant]
     Active Substance: ALBUTEROL SULFATE
     Dosage: 2 PUFFS EVERY 4 HOURS AS NEEDED
  6. ENOXAPARIN [Concomitant]
     Active Substance: ENOXAPARIN
     Dosage: 40 MG EVERY 24 HOURS
     Route: 058
  7. DULERA [Concomitant]
     Active Substance: FORMOTEROL FUMARATE DIHYDRATE\MOMETASONE FUROATE
     Dosage: 2 PUFFS TWICE DAILY
  8. SINGULAIR [Concomitant]
     Active Substance: MONTELUKAST SODIUM
     Route: 048
  9. SIMETHICONE (DIMETHICONE) [Concomitant]
     Active Substance: DIMETHICONE
  10. HUMALOG [Concomitant]
     Active Substance: INSULIN LISPRO
     Dosage: 1?7 UNITS SUBCUTANEOUS WITH MEALS AND NIGHTLY
     Route: 058
  11. ACETAMINOPHEN. [Concomitant]
     Active Substance: ACETAMINOPHEN
  12. HUMALOG [Concomitant]
     Active Substance: INSULIN LISPRO
     Dosage: USE IN V?GO 40 (76 UNITS DAILY) 6 CLICKS (12 UNITS) BEFORE EACH MEAL.
  13. ZENPEP [Concomitant]
     Active Substance: PANCRELIPASE AMYLASE\PANCRELIPASE LIPASE\PANCRELIPASE PROTEASE
     Dosage: TAKE 1 CAPSULE TID WITH MEALS. TAKE WITH 15000 UNITS FOR A TOTAL OF 35000 UNITS. TAKE 1 CAPSULE WITH
     Route: 048
  14. PROTONIX [Concomitant]
     Active Substance: PANTOPRAZOLE SODIUM
     Route: 048
  15. BACTRIM DS [Concomitant]
     Active Substance: SULFAMETHOXAZOLE\TRIMETHOPRIM
     Dosage: 800/160 MG TABLET. TAKE 1 TABLET BID FOR 10 DAYS
     Route: 048
  16. TRIAMCINOLONE [Concomitant]
     Active Substance: TRIAMCINOLONE
     Indication: ECZEMA
     Dosage: 0.1% CREAM, APPLY TOPICALLY 2 TIMES A DAY AS NEEDED (ECZEMA)
     Route: 061
  17. ATROVENT [Concomitant]
     Active Substance: IPRATROPIUM BROMIDE
  18. FLOMAX [Concomitant]
     Active Substance: TAMSULOSIN HYDROCHLORIDE
     Dosage: 1 TABLET DAILY WITH BREAKFAST
     Route: 048
  19. ULTRAM [Concomitant]
     Active Substance: TRAMADOL HYDROCHLORIDE
     Dosage: 50 MG EVERY 6 HOURS AS NEEDED.
     Route: 048
  20. ULTRAM [Suspect]
     Active Substance: TRAMADOL HYDROCHLORIDE
  21. NEURONTIN [Concomitant]
     Active Substance: GABAPENTIN
     Dosage: 300 MG EVERY 12 HOURS
     Route: 048
  22. MELATONIN [Concomitant]
     Active Substance: MELATONIN
  23. INSULIN [Concomitant]
     Active Substance: INSULIN NOS
     Dosage: SUBCUTANEOUS CONTINUOUS INFUSION
     Route: 058
  24. MACITENTAN [Suspect]
     Active Substance: MACITENTAN
     Indication: PULMONARY HYPERTENSION
     Route: 048
  25. GLUCAGON. [Concomitant]
     Active Substance: GLUCAGON
     Dosage: 1 MG IM PRN FOR SEVERE LOW BLOOD SUGAR
  26. CONSTULOSE [Concomitant]
     Active Substance: LACTULOSE
     Dosage: TAKE 30 ML ONCE DAILY (10 GM DAILY)
     Route: 048

REACTIONS (23)
  - Pulmonary arterial hypertension [Recovering/Resolving]
  - Asthma [Recovering/Resolving]
  - Meniere^s disease [Unknown]
  - Pancreatitis chronic [Unknown]
  - Muscular weakness [Recovering/Resolving]
  - Blood glucose increased [Not Recovered/Not Resolved]
  - Cirrhosis alcoholic [Unknown]
  - Prothrombin time abnormal [Unknown]
  - Pneumonia [Recovered/Resolved]
  - Alcohol abuse [Unknown]
  - Sleep apnoea syndrome [Unknown]
  - Stasis dermatitis [Unknown]
  - Blood potassium abnormal [Recovered/Resolved]
  - Osteomyelitis [Unknown]
  - Pain in extremity [Recovering/Resolving]
  - Blood chloride increased [Recovered/Resolved]
  - Type 1 diabetes mellitus [Unknown]
  - Thrombocytopenia [Recovering/Resolving]
  - Blood albumin decreased [Unknown]
  - Respiratory failure [Recovering/Resolving]
  - Rhinovirus infection [Recovered/Resolved]
  - Aspartate aminotransferase increased [Unknown]
  - Carbon dioxide abnormal [Recovered/Resolved]

NARRATIVE: CASE EVENT DATE: 20200903
